FAERS Safety Report 24806697 (Version 2)
Quarter: 2025Q2

REPORT INFORMATION
  Report Type: Spontaneous
  Country: US (occurrence: US)
  Receive Date: 20250104
  Receipt Date: 20250523
  Transmission Date: 20250717
  Serious: No
  Sender: SANOFI AVENTIS
  Company Number: US-SA-2025SA001370

PATIENT
  Age: 75 Year
  Sex: Male

DRUGS (2)
  1. DUPIXENT [Suspect]
     Active Substance: DUPILUMAB
     Indication: Nasal polyps
     Dosage: 300 MG, QOW
     Route: 058
     Dates: start: 2022, end: 2024
  2. DUPIXENT [Suspect]
     Active Substance: DUPILUMAB
     Dosage: 300 MG, QOW
     Route: 058
     Dates: start: 2024

REACTIONS (7)
  - Constipation [Recovered/Resolved]
  - Rhinorrhoea [Unknown]
  - Nasal congestion [Unknown]
  - Condition aggravated [Unknown]
  - Parosmia [Unknown]
  - Condition aggravated [Unknown]
  - Surgery [Unknown]

NARRATIVE: CASE EVENT DATE: 20240101
